FAERS Safety Report 20668245 (Version 2)
Quarter: 2022Q3

REPORT INFORMATION
  Report Type: Spontaneous
  Country: US (occurrence: US)
  Receive Date: 20220404
  Receipt Date: 20220823
  Transmission Date: 20221026
  Serious: Yes (Other)
  Sender: FDA-Public Use
  Company Number: US-BoehringerIngelheim-2022-BI-163049

PATIENT
  Age: 69 Year
  Sex: Female

DRUGS (1)
  1. TRADJENTA [Suspect]
     Active Substance: LINAGLIPTIN
     Indication: Product used for unknown indication
     Route: 048

REACTIONS (4)
  - Neoplasm malignant [Unknown]
  - Multiple sclerosis [Unknown]
  - Contusion [Recovered/Resolved]
  - Diabetes mellitus [Unknown]

NARRATIVE: CASE EVENT DATE: 20220822
